FAERS Safety Report 5152998-4 (Version None)
Quarter: 2006Q4

REPORT INFORMATION
  Report Type: 
  Country: None (occurrence: None)
  Receive Date: 20061117
  Receipt Date: 20030929
  Transmission Date: 20070319
  Serious: Yes (Other)
  Sender: FDA-Public Use
  Company Number: US-BAYER-200324911BWH

PATIENT
  Age: 61 Year
  Sex: Male

DRUGS (11)
  1. LEVITRA [Suspect]
     Indication: ERECTILE DYSFUNCTION
     Dosage: TOTAL DAILY DOSE: 20 MG  UNIT DOSE: 20 MG
     Route: 048
     Dates: start: 20030928
  2. LEVITRA [Interacting]
     Dosage: TOTAL DAILY DOSE: 20 MG  UNIT DOSE: 20 MG
     Route: 048
     Dates: start: 20030926
  3. NIFEDIPINE [Interacting]
  4. METOPROLOL TARTRATE [Interacting]
  5. HYDRALAZINE HCL [Interacting]
  6. LISINOPRIL [Interacting]
  7. DYAZIDE [Interacting]
  8. VIAGRA [Concomitant]
     Route: 048
  9. ATENOLOL [Concomitant]
     Dosage: UNIT DOSE: 50 MG
  10. PROTONIX [Concomitant]
     Dosage: UNIT DOSE: 40 MG
  11. HIGH CHOLESTEROL MEDICATION [Concomitant]

REACTIONS (4)
  - DRUG INEFFECTIVE [None]
  - DRUG INTERACTION [None]
  - ERECTILE DYSFUNCTION [None]
  - HYPERTENSION [None]
